FAERS Safety Report 9516656 (Version 1)
Quarter: 2013Q3

REPORT INFORMATION
  Report Type: Report from Study
  Country: US (occurrence: US)
  Receive Date: 20130911
  Receipt Date: 20130911
  Transmission Date: 20140515
  Serious: Yes (Hospitalization, Other)
  Sender: FDA-Public Use
  Company Number: US-ASTRAZENECA-2013SE67922

PATIENT
  Age: 2 Year
  Sex: Male

DRUGS (1)
  1. QUETIAPINE [Suspect]
     Dosage: 1200 MG :82.76 MG/KG
     Route: 048

REACTIONS (4)
  - Respiratory depression [Unknown]
  - Lethargy [Unknown]
  - Hypotension [Unknown]
  - Overdose [Unknown]
